FAERS Safety Report 4829919-4 (Version None)
Quarter: 2005Q4

REPORT INFORMATION
  Report Type: 
  Country: None (occurrence: None)
  Receive Date: 20051115
  Receipt Date: 20051102
  Transmission Date: 20060501
  Serious: Yes (Congenital Anomaly)
  Sender: FDA-Public Use
  Company Number: 2005141323

PATIENT
  Sex: 0

DRUGS (4)
  1. DEPO-PROVERA [Suspect]
     Indication: CONTRACEPTION
     Dosage: 150 MG (150 MG, 1 ST INJECTION, EVERY 3 MONTHS), INTRAMUSCULAR
     Route: 030
     Dates: start: 20030101, end: 20030101
  2. DEPO-PROVERA [Suspect]
     Dosage: 150 MG (150 MG, INJECTION EVERY 3 MONTHS), INTRAMUSCULAR; 150 MG (150 MG, LAST INJECTION), INTRAMUSC
     Route: 030
     Dates: start: 20050204, end: 20050204
  3. DEPO-PROVERA [Suspect]
     Dosage: 150 MG (150 MG, INJECTION EVERY 3 MONTHS), INTRAMUSCULAR; 150 MG (150 MG, LAST INJECTION), INTRAMUSC
     Route: 030
     Dates: start: 20050422, end: 20050422
  4. DEPO-PROVERA [Suspect]
     Dosage: 150 MG (150 MG, INJECTION EVERY 3 MONTHS), INTRAMUSCULAR; 150 MG (150 MG, LAST INJECTION), INTRAMUSC
     Route: 030
     Dates: start: 20050923, end: 20050923

REACTIONS (2)
  - ATRIOVENTRICULAR SEPTAL DEFECT [None]
  - DRUG EXPOSURE DURING PREGNANCY [None]
